FAERS Safety Report 4994177-7 (Version None)
Quarter: 2006Q2

REPORT INFORMATION
  Report Type: 
  Country: None (occurrence: None)
  Receive Date: 20060503
  Receipt Date: 20060427
  Transmission Date: 20061013
  Serious: Yes (Other)
  Sender: FDA-Public Use
  Company Number: JP200604004599

PATIENT
  Age: 45 Year
  Sex: Female

DRUGS (1)
  1. GEMZAR [Suspect]
     Indication: BILE DUCT CANCER
     Dosage: 1000 MG/M2
     Route: 042
     Dates: start: 20060401, end: 20060401

REACTIONS (2)
  - HALLUCINATION, VISUAL [None]
  - VISUAL DISTURBANCE [None]
